FAERS Safety Report 7157476-9 (Version None)
Quarter: 2010Q4

REPORT INFORMATION
  Report Type: 
  Country: None (occurrence: None)
  Receive Date: 20101214
  Receipt Date: 20101206
  Transmission Date: 20110411
  Serious: Yes (Death)
  Sender: FDA-Public Use
  Company Number: B0688796A

PATIENT
  Sex: Female

DRUGS (8)
  1. ARIXTRA [Suspect]
     Indication: PULMONARY EMBOLISM
     Route: 058
     Dates: start: 20101001, end: 20101016
  2. PERFALGAN [Concomitant]
     Dosage: 1000MG PER DAY
     Route: 042
  3. LASIX [Concomitant]
     Dosage: 20ML PER DAY
     Route: 042
  4. UNKNOWN [Concomitant]
     Dosage: 20ML PER DAY
     Route: 042
  5. RANIDIL [Concomitant]
     Dosage: 50MG PER DAY
     Route: 042
  6. ALLOPURINOL [Concomitant]
     Dosage: 300MG PER DAY
     Route: 048
  7. LANOXIN [Concomitant]
     Dosage: 600MG PER DAY
     Route: 048
  8. URBASON [Concomitant]
     Dosage: 20ML PER DAY
     Route: 030

REACTIONS (2)
  - CARDIOVASCULAR DISORDER [None]
  - MUSCLE HAEMORRHAGE [None]
